FAERS Safety Report 7389048-5 (Version None)
Quarter: 2011Q2

REPORT INFORMATION
  Report Type: 
  Country: None (occurrence: None)
  Receive Date: 20110401
  Receipt Date: 20110330
  Transmission Date: 20111010
  Serious: Yes (Other)
  Sender: FDA-Public Use
  Company Number: US-PERRIGO-11US002333

PATIENT
  Age: 5 Year
  Sex: Female
  Weight: 18.141 kg

DRUGS (1)
  1. IBUPROFEN [Suspect]
     Indication: PYREXIA
     Dosage: 1 1/2 TEASPOONS. AS NEEDED
     Route: 048
     Dates: start: 20100301, end: 20110315

REACTIONS (4)
  - STREPTOCOCCAL INFECTION [None]
  - ASTHMA [None]
  - INFLAMMATION [None]
  - PNEUMONIA [None]
